FAERS Safety Report 10205690 (Version 1)
Quarter: 2014Q2

REPORT INFORMATION
  Report Type: Report from Study
  Country: DE (occurrence: DE)
  Receive Date: 20140530
  Receipt Date: 20140530
  Transmission Date: 20141212
  Serious: Yes (Hospitalization)
  Sender: FDA-Public Use
  Company Number: DE-AMGEN-DEUCT2014038823

PATIENT
  Age: 57 Year
  Sex: Female

DRUGS (12)
  1. ETANERCEPT [Suspect]
     Indication: RHEUMATOID ARTHRITIS
     Dosage: 25 MG, EVERY 5 DAY
     Route: 065
     Dates: end: 201308
  2. METHOTREXATE SODIUM [Concomitant]
     Dosage: 15 MG, WEEKLY
     Dates: end: 201308
  3. METOPROLOL [Concomitant]
     Dosage: UNK
  4. VOLTAREN RESINAT [Concomitant]
     Dosage: UNK
  5. FOLIC ACID [Concomitant]
     Dosage: UNK
  6. TRAMAL [Concomitant]
     Dosage: UNK
  7. VIGANTOLETTEN [Concomitant]
     Dosage: UNK
  8. ACC LONG [Concomitant]
     Dosage: UNK
  9. SEVIKAR HCT [Concomitant]
     Dosage: UNK
  10. PREDNISOLON                        /00016201/ [Concomitant]
     Dosage: UNK
  11. PANTOPRAZOL [Concomitant]
     Dosage: UNK
  12. AMPHO-MORONAL [Concomitant]
     Dosage: UNK

REACTIONS (1)
  - Endocarditis [Recovered/Resolved]
